FAERS Safety Report 7210280-5 (Version None)
Quarter: 2011Q1

REPORT INFORMATION
  Report Type: 
  Country: None (occurrence: None)
  Receive Date: 20110103
  Receipt Date: 20110103
  Transmission Date: 20110831
  Serious: No
  Sender: FDA-Public Use
  Company Number: None

PATIENT
  Age: 71 Year
  Sex: Male
  Weight: 119.7 kg

DRUGS (1)
  1. REGADENOSON [Suspect]
     Indication: SCAN MYOCARDIAL PERFUSION
     Dosage: 0.4 MG ONCE IV
     Route: 042
     Dates: start: 20101026, end: 20101026

REACTIONS (2)
  - RESPIRATORY DISTRESS [None]
  - THROAT TIGHTNESS [None]
